FAERS Safety Report 4982327-8 (Version None)
Quarter: 2006Q2

REPORT INFORMATION
  Report Type: 
  Country: None (occurrence: None)
  Receive Date: 20060425
  Receipt Date: 20060413
  Transmission Date: 20061013
  Serious: Yes (Life-Threatening, Hospitalization)
  Sender: FDA-Public Use
  Company Number: US-ROCHE-444493

PATIENT
  Age: 58 Year
  Sex: Female

DRUGS (2)
  1. CELLCEPT [Suspect]
     Route: 065
     Dates: end: 20051204
  2. PROGRAF [Concomitant]

REACTIONS (5)
  - ANAEMIA [None]
  - ANXIETY [None]
  - DIARRHOEA [None]
  - HYPOVOLAEMIA [None]
  - VOMITING [None]
